FAERS Safety Report 7012085-7 (Version None)
Quarter: 2010Q3

REPORT INFORMATION
  Report Type: 
  Country: None (occurrence: None)
  Receive Date: 20100922
  Receipt Date: 20100922
  Transmission Date: 20110219
  Serious: Yes (Hospitalization)
  Sender: FDA-Public Use
  Company Number: None

PATIENT
  Age: 65 Year
  Sex: Male

DRUGS (1)
  1. INSULIN [Suspect]
     Dosage: 72 UNITS AM SQ
     Route: 058
     Dates: start: 20091015

REACTIONS (6)
  - AGITATION [None]
  - CONFUSIONAL STATE [None]
  - HYPERGLYCAEMIA [None]
  - MUSCLE TWITCHING [None]
  - TREATMENT NONCOMPLIANCE [None]
  - VISION BLURRED [None]
